FAERS Safety Report 20953383 (Version 1)
Quarter: 2022Q2

REPORT INFORMATION
  Report Type: Spontaneous
  Country: US (occurrence: US)
  Receive Date: 20220613
  Receipt Date: 20220613
  Transmission Date: 20220721
  Serious: No
  Sender: FDA-Public Use
  Company Number: US-NOVARTISTESTPH-NVSC2022US134417

PATIENT
  Sex: Female

DRUGS (4)
  1. KISQALI [Suspect]
     Active Substance: RIBOCICLIB
     Indication: Human epidermal growth factor receptor negative
     Dosage: 600 MG, QD
     Route: 048
  2. KISQALI [Suspect]
     Active Substance: RIBOCICLIB
     Indication: Breast cancer metastatic
  3. FEMARA [Suspect]
     Active Substance: LETROZOLE
     Indication: Human epidermal growth factor receptor negative
     Dosage: UNK
     Route: 065
  4. FEMARA [Suspect]
     Active Substance: LETROZOLE
     Indication: Breast cancer metastatic

REACTIONS (1)
  - Arthralgia [Unknown]
